FAERS Safety Report 8124764-9 (Version None)
Quarter: 2012Q1

REPORT INFORMATION
  Report Type: 
  Country: None (occurrence: None)
  Receive Date: 20120209
  Receipt Date: 20120209
  Transmission Date: 20120608
  Serious: Yes (Hospitalization)
  Sender: FDA-Public Use
  Company Number: SK-PFIZER INC-2012017856

PATIENT
  Age: 15 Year
  Sex: Female
  Weight: 59 kg

DRUGS (2)
  1. SOMATROPIN [Suspect]
     Dosage: 1.8 MG, 1X/DAY
     Dates: start: 20111201
  2. SOMATROPIN [Suspect]
     Indication: GROWTH HORMONE DEFICIENCY
     Dosage: 1.8 MG, 1X/DAY
     Dates: start: 20081208, end: 20111212

REACTIONS (3)
  - HEADACHE [None]
  - VOMITING [None]
  - VERTIGO [None]
